FAERS Safety Report 7347930-9 (Version None)
Quarter: 2011Q1

REPORT INFORMATION
  Report Type: 
  Country: None (occurrence: None)
  Receive Date: 20110311
  Receipt Date: 20110308
  Transmission Date: 20110831
  Serious: Yes (Hospitalization, Other)
  Sender: FDA-Public Use
  Company Number: US-PFIZER INC-2011020165

PATIENT
  Sex: Female

DRUGS (2)
  1. EFFEXOR [Suspect]
     Indication: BIPOLAR DISORDER
     Dosage: 75 MG, UNK
     Route: 064
     Dates: start: 20060101
  2. EFFEXOR [Suspect]
     Dosage: 300 MG, 1X/DAY
     Route: 064

REACTIONS (5)
  - DYSPNOEA [None]
  - DRUG EXPOSURE VIA BREAST MILK [None]
  - CRYING [None]
  - DRUG EXPOSURE DURING PREGNANCY [None]
  - TREMOR [None]
